FAERS Safety Report 9437867 (Version 1)
Quarter: 2013Q3

REPORT INFORMATION
  Report Type: Spontaneous
  Country: US (occurrence: US)
  Receive Date: 20130802
  Receipt Date: 20130802
  Transmission Date: 20140515
  Serious: No
  Sender: FDA-Public Use
  Company Number: US-BRISTOL-MYERS SQUIBB COMPANY-18858324

PATIENT
  Age: 60 Year
  Sex: Male
  Weight: 86.17 kg

DRUGS (3)
  1. WARFARIN SODIUM [Suspect]
  2. LISINOPRIL [Concomitant]
  3. PITAVASTATIN CALCIUM [Concomitant]

REACTIONS (3)
  - Cognitive disorder [Unknown]
  - Haemorrhage [Unknown]
  - Contusion [Unknown]
